FAERS Safety Report 5855622-8 (Version None)
Quarter: 2008Q3

REPORT INFORMATION
  Report Type: 
  Country: None (occurrence: None)
  Receive Date: 20080821
  Receipt Date: 20080811
  Transmission Date: 20090109
  Serious: Yes (Death)
  Sender: FDA-Public Use
  Company Number: 237557J08USA

PATIENT
  Age: 55 Year
  Sex: Female

DRUGS (2)
  1. REBIF [Suspect]
     Indication: MULTIPLE SCLEROSIS
     Dosage: 44 MCG, 3 IN 1 WEEKS, SUBCUTANEOUS
     Route: 058
     Dates: start: 20070907, end: 20080709
  2. ANTIHYPERTENSIVE PILS (ANTIHYPERTENSIVES) [Concomitant]

REACTIONS (6)
  - AORTIC DISSECTION [None]
  - BLOOD PRESSURE SYSTOLIC DECREASED [None]
  - CARDIO-RESPIRATORY ARREST [None]
  - CONVULSION [None]
  - DYSPNOEA [None]
  - INTRACARDIAC THROMBUS [None]
